FAERS Safety Report 6457529-4 (Version None)
Quarter: 2009Q4

REPORT INFORMATION
  Report Type: 
  Country: None (occurrence: None)
  Receive Date: 20091125
  Receipt Date: 20091112
  Transmission Date: 20100525
  Serious: Yes (Hospitalization, Other)
  Sender: FDA-Public Use
  Company Number: PHEH2007US15445

PATIENT
  Sex: Female

DRUGS (65)
  1. AREDIA [Suspect]
  2. ZOMETA [Suspect]
  3. REVLIMID [Concomitant]
     Dosage: UNK
     Dates: end: 20070701
  4. ANTINEOPLASTIC AGENTS [Concomitant]
  5. RADIATION THERAPY [Concomitant]
  6. POTASSIUM [Concomitant]
  7. PRAVACHOL [Concomitant]
  8. OXYCONTIN [Concomitant]
  9. ZOLOFT [Concomitant]
     Dosage: 50 MG / TWICE DAILY
  10. ZOLOFT [Concomitant]
     Dosage: 100 MG /  DAILY
  11. TEMAZEPAM [Concomitant]
  12. REQUIP [Concomitant]
  13. OMEPRAZOLE [Concomitant]
  14. PROTONIX [Concomitant]
  15. LISINOPRIL [Concomitant]
  16. VALTREX [Concomitant]
  17. XANAX [Concomitant]
  18. PERCOCET [Concomitant]
  19. HYDROCHLOROTHIAZIDE [Concomitant]
  20. DEXAMETHASONE TAB [Concomitant]
  21. ARANESP [Concomitant]
  22. OXYCODONE HCL AND ACETAMINOPHEN [Concomitant]
  23. PANTOPRAZOLE [Concomitant]
     Dosage: 40 MG / DAILY
  24. PRAVASTATIN [Concomitant]
     Dosage: 80 MG / DAILY
  25. POTASSIUM CHLORIDE [Concomitant]
     Dosage: 10 MG / DAILY
  26. ZETIA [Concomitant]
     Dosage: 10 MG / DAILY
  27. MORPHINE SULFATE [Concomitant]
     Dosage: 60 MG / TWICE DAILY
  28. ASPIRIN [Concomitant]
     Dosage: 81 MG / DAILY
  29. OXYCODONE HCL [Concomitant]
     Dosage: 40 MG / TWICE DAILY
  30. LORAZEPAM [Concomitant]
     Dosage: 7 MG / AS NEEDED
  31. NITROFURAN [Concomitant]
     Dosage: 100 MG / TWICE DAILY
  32. CYMBALTA [Concomitant]
     Dosage: 30 MG
  33. DESIPRAMINE [Concomitant]
     Dosage: 10 MG
  34. ROXICODONE [Concomitant]
     Dosage: 5 MG / AS NEEDED
  35. PHENERGAN VC [Concomitant]
     Dosage: UNK
  36. Z-PAK [Concomitant]
     Dosage: UNK
  37. GLYBURIDE [Concomitant]
     Dosage: 5 MG / DAILY BEFORE NOON
  38. K-DUR [Concomitant]
     Dosage: 20 MG/ 3 X DAY FOR 2 DAYS, THEN BID
  39. LIPITOR [Concomitant]
     Dosage: 40 MG / PM
  40. VELCADE [Concomitant]
     Dosage: UNK
     Route: 042
  41. STEROIDS NOS [Concomitant]
     Dosage: 20 MG
  42. TEQUIN [Concomitant]
     Dosage: 400 MG / DAILY
  43. DECADRON                                /CAN/ [Concomitant]
     Dosage: UNK
  44. ZOCOR [Concomitant]
     Dosage: 40 MG / TWICE DAILY
  45. ATENOLOL [Concomitant]
     Dosage: 50 MG / DAILY
  46. PRINZIDE [Concomitant]
     Dosage: 10/12.5 / DAILY
  47. RANITIDINE [Concomitant]
     Dosage: 150 MG / DAILY
  48. ZANTAC [Concomitant]
     Dosage: UNK
  49. CYTOXAN [Concomitant]
     Dosage: UNK
  50. VALIUM [Concomitant]
     Dosage: UNK
  51. PROCRIT                            /00909301/ [Concomitant]
     Dosage: UNK / EVERY 2 WEEKS
  52. PAMIDRONATE DISODIUM [Concomitant]
     Dosage: UNK
  53. ATIVAN [Concomitant]
     Dosage: 1 MG / TWICE DAILY
  54. RESTORIL [Concomitant]
     Dosage: 1.5 MG / EVERY NIGHT AT BEDTIME
  55. ZOLEDRONATE [Concomitant]
     Dosage: UNK
  56. ROXICET [Concomitant]
     Dosage: UNK
  57. ALENDRONATE SODIUM [Concomitant]
  58. THALIDOMIDE [Concomitant]
     Dosage: UNK
  59. GABAPENTIN [Concomitant]
     Dosage: 100 / T.I.D.
  60. ACYCLOVIR [Concomitant]
     Dosage: 800 MG / 5 X DAILY FOR 5 DAYS
     Route: 048
  61. NEURONTIN [Concomitant]
     Dosage: 300 MG /T.I.D.
     Route: 048
  62. DILAUDID [Concomitant]
     Indication: PAIN
     Dosage: 2 MG / 1 OR 2 TABS EVERY 2 HRS, PRN
  63. DEPO-MEDROL [Concomitant]
     Dosage: UNK
  64. QUININE SULFATE [Concomitant]
     Indication: MUSCLE SPASMS
     Dosage: 260 MG/ AS NEEDED
     Route: 048
  65. ALEVE [Concomitant]
     Dosage: UNK

REACTIONS (39)
  - ANAEMIA [None]
  - ANXIETY [None]
  - ARTHRALGIA [None]
  - BACK PAIN [None]
  - BIOPSY BONE MARROW ABNORMAL [None]
  - BONE DISORDER [None]
  - BONE MARROW TRANSPLANT [None]
  - DEBRIDEMENT [None]
  - DENTAL CARIES [None]
  - DIABETES MELLITUS [None]
  - DYSPHONIA [None]
  - FACIAL PAIN [None]
  - FALL [None]
  - GROIN PAIN [None]
  - INJURY [None]
  - INTERVERTEBRAL DISC DISORDER [None]
  - INTERVERTEBRAL DISC OPERATION [None]
  - JAW OPERATION [None]
  - LEUKOPENIA [None]
  - LUMBAR VERTEBRAL FRACTURE [None]
  - MULTIPLE MYELOMA [None]
  - MYALGIA [None]
  - NEUROFIBROMA [None]
  - NEUROPATHY PERIPHERAL [None]
  - OSTEOMYELITIS [None]
  - OSTEONECROSIS [None]
  - PAIN [None]
  - PAIN IN EXTREMITY [None]
  - PARAESTHESIA [None]
  - PLASMACYTOMA [None]
  - PNEUMONIA [None]
  - RADICULAR PAIN [None]
  - SPINAL COLUMN STENOSIS [None]
  - SPINAL DISORDER [None]
  - SPLENOMEGALY [None]
  - STEM CELL TRANSPLANT [None]
  - THROMBOCYTOPENIA [None]
  - TOOTH EXTRACTION [None]
  - WEIGHT INCREASED [None]
